FAERS Safety Report 11659081 (Version 1)
Quarter: 2015Q4

REPORT INFORMATION
  Report Type: Spontaneous
  Country: US (occurrence: US)
  Receive Date: 20151026
  Receipt Date: 20151026
  Transmission Date: 20160304
  Serious: No
  Sender: FDA-Public Use
  Company Number: US-MEDA-2010070072

PATIENT
  Age: 71 Year
  Sex: Male
  Weight: 71 kg

DRUGS (12)
  1. NASACORT [Concomitant]
     Active Substance: TRIAMCINOLONE ACETONIDE
     Indication: HOUSE DUST ALLERGY
     Dates: end: 2010
  2. NASACORT [Concomitant]
     Active Substance: TRIAMCINOLONE ACETONIDE
     Indication: SINUSITIS
     Dates: start: 2010, end: 20100722
  3. ASTEPRO [Suspect]
     Active Substance: AZELASTINE HYDROCHLORIDE
     Indication: MYCOTIC ALLERGY
  4. ASTEPRO [Suspect]
     Active Substance: AZELASTINE HYDROCHLORIDE
     Indication: MYCOTIC ALLERGY
     Dates: start: 2010
  5. NASACORT [Concomitant]
     Active Substance: TRIAMCINOLONE ACETONIDE
     Indication: MYCOTIC ALLERGY
     Dates: end: 2010
  6. NASACORT [Concomitant]
     Active Substance: TRIAMCINOLONE ACETONIDE
     Indication: SINUSITIS
     Dates: end: 2010
  7. ASTEPRO [Suspect]
     Active Substance: AZELASTINE HYDROCHLORIDE
     Indication: HOUSE DUST ALLERGY
  8. NASACORT [Concomitant]
     Active Substance: TRIAMCINOLONE ACETONIDE
     Indication: HOUSE DUST ALLERGY
     Dates: start: 2010, end: 20100722
  9. ASTEPRO [Suspect]
     Active Substance: AZELASTINE HYDROCHLORIDE
     Indication: HOUSE DUST ALLERGY
     Dates: start: 2010
  10. NASACORT [Concomitant]
     Active Substance: TRIAMCINOLONE ACETONIDE
     Indication: MYCOTIC ALLERGY
     Dates: start: 2010, end: 20100722
  11. NASACORT [Concomitant]
     Active Substance: TRIAMCINOLONE ACETONIDE
     Indication: UPPER-AIRWAY COUGH SYNDROME
     Dates: start: 2010, end: 20100722
  12. NASACORT [Concomitant]
     Active Substance: TRIAMCINOLONE ACETONIDE
     Indication: UPPER-AIRWAY COUGH SYNDROME
     Dates: end: 2010

REACTIONS (4)
  - Breath sounds abnormal [Unknown]
  - Upper-airway cough syndrome [Unknown]
  - Dysgeusia [Recovering/Resolving]
  - Cough [Unknown]

NARRATIVE: CASE EVENT DATE: 20100725
